FAERS Safety Report 7743755-0 (Version None)
Quarter: 2011Q3

REPORT INFORMATION
  Report Type: 
  Country: None (occurrence: None)
  Receive Date: 20110912
  Receipt Date: 20110906
  Transmission Date: 20111222
  Serious: Yes (Other)
  Sender: FDA-Public Use
  Company Number: JP-JHP PHARMACEUTICALS, LLC-JHP201100444

PATIENT
  Sex: Female

DRUGS (2)
  1. DANTRIUM [Suspect]
     Dosage: 100 MG, DAILY
     Route: 048
  2. DANTRIUM [Suspect]
     Dosage: 150 MG, DAILY
     Route: 048

REACTIONS (2)
  - PETECHIAE [None]
  - HAEMORRHAGE SUBCUTANEOUS [None]
